FAERS Safety Report 9011194 (Version 1)
Quarter: 2013Q1

REPORT INFORMATION
  Report Type: Spontaneous
  Country: US (occurrence: US)
  Receive Date: 20130109
  Receipt Date: 20130109
  Transmission Date: 20140127
  Serious: Yes (Death)
  Sender: FDA-Public Use
  Company Number: US-PFIZER INC-2013005908

PATIENT
  Age: 31 Year
  Sex: Male

DRUGS (4)
  1. VERAPAMIL HCL [Suspect]
     Dosage: UNK
  2. METOPROLOL [Suspect]
  3. METOCLOPRAMIDE [Suspect]
  4. HYDROCHLOROTHIAZIDE\TRIAMTERENE [Suspect]

REACTIONS (3)
  - Completed suicide [Fatal]
  - Intentional drug misuse [None]
  - Toxicity to various agents [None]
